FAERS Safety Report 8976722 (Version 1)
Quarter: 2012Q4

REPORT INFORMATION
  Report Type: 
  Country: NL (occurrence: NL)
  Receive Date: 20121220
  Receipt Date: 20121220
  Transmission Date: 20130627
  Serious: Yes (Other)
  Sender: FDA-Public Use
  Company Number: NL-AMGEN-NLDSP2012080694

PATIENT
  Sex: Female

DRUGS (7)
  1. ARANESP [Suspect]
     Indication: PRODUCT USED FOR UNKNOWN INDICATION
     Dosage: 500 mug, q3wk
     Route: 058
     Dates: start: 20121212
  2. ARANESP [Suspect]
     Dosage: 500 mug, q3wk
     Dates: start: 20121025, end: 20121025
  3. XELODA [Concomitant]
     Dosage: 150 mg, bid
  4. VITAMINS                           /00067501/ [Concomitant]
  5. CALCIUM [Concomitant]
  6. IRON [Concomitant]
  7. ACENOCOUMAROL [Concomitant]
     Dosage: UNK
     Dates: start: 20121126

REACTIONS (1)
  - Pulmonary embolism [Unknown]
